FAERS Safety Report 7364096-X (Version None)
Quarter: 2011Q1

REPORT INFORMATION
  Report Type: 
  Country: None (occurrence: None)
  Receive Date: 20110321
  Receipt Date: 20110309
  Transmission Date: 20110831
  Serious: Yes (Other)
  Sender: FDA-Public Use
  Company Number: PHHY2011GB17668

PATIENT
  Age: 22 Year
  Sex: Male

DRUGS (4)
  1. LACOSAMIDE [Interacting]
     Dosage: 200 MG, QD
  2. LACOSAMIDE [Interacting]
     Indication: CONVULSION
     Dosage: 100 MG, QD
  3. CARBAMAZEPINE [Suspect]
     Indication: CONVULSION
     Dosage: 1800 MG, QD
  4. CARBAMAZEPINE [Interacting]
     Dosage: 1200 MG, QD

REACTIONS (5)
  - VISION BLURRED [None]
  - DRUG INTERACTION [None]
  - NEUROTOXICITY [None]
  - DIZZINESS [None]
  - DEPRESSED LEVEL OF CONSCIOUSNESS [None]
